FAERS Safety Report 8986213 (Version 1)
Quarter: 2012Q4

REPORT INFORMATION
  Report Type: Report from Study
  Country: DE (occurrence: DE)
  Receive Date: 20121226
  Receipt Date: 20121226
  Transmission Date: 20130627
  Serious: Yes (Hospitalization, Disabling)
  Sender: FDA-Public Use
  Company Number: DE-TEVA-377613USA

PATIENT
  Age: 68 Year
  Sex: Male
  Weight: 83 kg

DRUGS (5)
  1. TREANDA [Suspect]
     Route: 042
     Dates: start: 20090814, end: 20100113
  2. RITUXIMAB [Suspect]
     Route: 015
     Dates: start: 20090813, end: 20100312
  3. LEVOTHYROXINE [Concomitant]
  4. PANTOPRAZOLE [Concomitant]
  5. CAPTOPRIL [Concomitant]
     Dates: start: 20090824

REACTIONS (3)
  - Leukopenia [Recovered/Resolved]
  - Thrombocytopenia [Recovered/Resolved]
  - Progressive multifocal leukoencephalopathy [Not Recovered/Not Resolved]
